FAERS Safety Report 9511726 (Version 2)
Quarter: 2013Q3

REPORT INFORMATION
  Report Type: Spontaneous
  Country: DE (occurrence: DE)
  Receive Date: 20130910
  Receipt Date: 20130910
  Transmission Date: 20140515
  Serious: Yes (Hospitalization, Disabling)
  Sender: FDA-Public Use
  Company Number: DE-SANOFI-AVENTIS-2013SA079974

PATIENT
  Age: 38 Year
  Sex: Female
  Weight: 67 kg

DRUGS (10)
  1. LANTUS [Suspect]
     Indication: PRODUCT USED FOR UNKNOWN INDICATION
     Route: 065
  2. SIMVASTATIN [Suspect]
     Indication: HYPERCHOLESTEROLAEMIA
     Route: 048
  3. BISOPROLOL HEMIFUMARATE [Suspect]
     Indication: CARDIAC FAILURE
     Route: 048
  4. NEORECORMON ^ROCHE^ [Suspect]
     Indication: ERYTHROPOIESIS ABNORMAL
     Route: 058
  5. ALL OTHER THERAPEUTIC PRODUCTS [Suspect]
     Indication: HYPERPHOSPHATAEMIA
     Route: 048
  6. MOTILIUM [Suspect]
     Indication: DIABETIC GASTROPARESIS
     Route: 048
  7. PANTOZOL [Suspect]
     Indication: GASTRITIS
     Route: 048
  8. DONEURIN [Concomitant]
     Indication: DEPRESSION
     Dosage: DOSE UNIT: 25 MG
     Route: 048
     Dates: start: 2012
  9. REMERGIL [Concomitant]
     Indication: DEPRESSION
     Route: 048
     Dates: start: 2012
  10. DEKRISTOL [Concomitant]
     Indication: DIALYSIS
     Dosage: VERY TWO WEEKS, UNIT DOSE: 20000 IU
     Route: 048

REACTIONS (1)
  - Gastroenteritis eosinophilic [Recovering/Resolving]
